FAERS Safety Report 17252898 (Version 1)
Quarter: 2019Q4

REPORT INFORMATION
  Report Type: Spontaneous
  Country: US (occurrence: US)
  Receive Date: 20191216
  Receipt Date: 20191216
  Transmission Date: 20200122
  Serious: Yes (Hospitalization)
  Sender: FDA-Public Use
  Company Number: None

PATIENT
  Age: 16 Year
  Sex: Male

DRUGS (14)
  1. PROVENTIL AER HFAA [Concomitant]
  2. POLYETH GLYC POW 3350 NF [Concomitant]
  3. FLOVENT HFA [Concomitant]
     Active Substance: FLUTICASONE PROPIONATE
  4. ALBUTEROL AER HFA [Concomitant]
  5. LORATADINE TAB [Concomitant]
  6. VITAMIN D CAP [Concomitant]
  7. FLUTICASONE SPR [Concomitant]
  8. PERTZY CAP [Concomitant]
  9. SMZ/TMP DS TAB [Concomitant]
  10. MONTELUKAST TAB [Concomitant]
  11. ESOMEPRA MAG CAP [Concomitant]
     Active Substance: ESOMEPRAZOLE MAGNESIUM
  12. TRIKAFTA [Suspect]
     Active Substance: ELEXACAFTOR\IVACAFTOR\TEZACAFTOR
     Indication: CYSTIC FIBROSIS
     Dosage: ?          OTHER DOSE:TAB;?
     Route: 048
     Dates: start: 201911
  13. TOBRAMYCIN. [Suspect]
     Active Substance: TOBRAMYCIN
     Indication: CYSTIC FIBROSIS
     Dosage: ?          OTHER DOSE:300MG/5ML;?
     Route: 055
     Dates: start: 20190906
  14. MVW COMPLETE CAP FORMULATE [Concomitant]

REACTIONS (1)
  - Hospitalisation [None]

NARRATIVE: CASE EVENT DATE: 20191106
